FAERS Safety Report 6755779-0 (Version None)
Quarter: 2010Q2

REPORT INFORMATION
  Report Type: 
  Country: None (occurrence: None)
  Receive Date: 20100604
  Receipt Date: 20100526
  Transmission Date: 20101027
  Serious: Yes (Hospitalization)
  Sender: FDA-Public Use
  Company Number: DE-ELI_LILLY_AND_COMPANY-DE201005007523

PATIENT
  Sex: Male

DRUGS (6)
  1. BYETTA [Suspect]
     Indication: DIABETES MELLITUS
     Dosage: 10 UG, UNK
     Route: 058
     Dates: start: 20100414
  2. METOPROLOL SUCCINATE [Concomitant]
     Dosage: UNK, 1-0-1/2
  3. RAMIPRIL [Concomitant]
  4. ASPIRIN [Concomitant]
     Dosage: UNK, EACH MORNING
  5. METFORMIN HCL [Concomitant]
     Dosage: 850 MG, EACH MORNING
  6. INSULIN [Concomitant]
     Dosage: UNK, EACH EVENING

REACTIONS (4)
  - CATHETERISATION CARDIAC [None]
  - NAUSEA [None]
  - OFF LABEL USE [None]
  - VOMITING [None]
